FAERS Safety Report 23953867 (Version 1)
Quarter: 2024Q2

REPORT INFORMATION
  Report Type: Spontaneous
  Country: GB (occurrence: GB)
  Receive Date: 20240609
  Receipt Date: 20240609
  Transmission Date: 20240716
  Serious: Yes (Other)
  Sender: FDA-Public Use
  Company Number: None

PATIENT
  Age: 69 Year
  Sex: Male
  Weight: 81 kg

DRUGS (2)
  1. AMLODIPINE [Suspect]
     Active Substance: AMLODIPINE BESYLATE
     Indication: Hypertension
     Dosage: 5MG ONCE A DAY
     Dates: start: 20240520, end: 20240521
  2. ALLOPURINOL [Concomitant]
     Active Substance: ALLOPURINOL
     Indication: Gout

REACTIONS (1)
  - Tendonitis [Recovering/Resolving]

NARRATIVE: CASE EVENT DATE: 20240520
